FAERS Safety Report 16159897 (Version 2)
Quarter: 2019Q2

REPORT INFORMATION
  Report Type: Report from Study
  Country: US (occurrence: US)
  Receive Date: 20190404
  Receipt Date: 20190415
  Transmission Date: 20190711
  Serious: Yes (Life-Threatening, Hospitalization, Other)
  Sender: FDA-Public Use
  Company Number: US-BEH-2019101117

PATIENT
  Age: 22 Year
  Sex: Female
  Weight: 45.35 kg

DRUGS (2)
  1. HIZENTRA [Suspect]
     Active Substance: HUMAN IMMUNOGLOBULIN G
     Indication: PRIMARY IMMUNODEFICIENCY SYNDROME
     Dosage: 10 G, QW
     Route: 058
     Dates: start: 20190401
  2. BENADRYL [Concomitant]
     Active Substance: DIPHENHYDRAMINE HYDROCHLORIDE
     Indication: PREMEDICATION
     Dosage: 25 MG, TOT
     Route: 042
     Dates: start: 20190401

REACTIONS (14)
  - Face oedema [Recovered/Resolved]
  - Infusion site pain [Recovered/Resolved]
  - Pain [Recovered/Resolved]
  - Swelling face [Not Recovered/Not Resolved]
  - Swollen tongue [Not Recovered/Not Resolved]
  - Abdominal distension [Not Recovered/Not Resolved]
  - Throat irritation [Recovered/Resolved]
  - Swollen tongue [Recovered/Resolved]
  - Throat tightness [Recovered/Resolved]
  - Flushing [Recovered/Resolved]
  - Headache [Recovered/Resolved]
  - Flushing [Not Recovered/Not Resolved]
  - Infusion site pain [Not Recovered/Not Resolved]
  - Angioedema [Not Recovered/Not Resolved]

NARRATIVE: CASE EVENT DATE: 20190401
